FAERS Safety Report 8243502 (Version 4)
Quarter: 2013Q2

REPORT INFORMATION
  Report Type: Spontaneous
  Country: US (occurrence: US)
  Receive Date: 20111114
  Receipt Date: 20130412
  Transmission Date: 20140414
  Serious: No
  Sender: FDA-Public Use
  Company Number: US-PFIZER INC-K200800234

PATIENT
  Age: 5 Decade
  Sex: Female

DRUGS (1)
  1. LEVOXYL [Suspect]
     Indication: THYROID DISORDER
     Dosage: UNK

REACTIONS (4)
  - Alopecia [Not Recovered/Not Resolved]
  - Pruritus [Unknown]
  - Feeling abnormal [Unknown]
  - Hot flush [Unknown]
